FAERS Safety Report 25198119 (Version 3)
Quarter: 2025Q4

REPORT INFORMATION
  Report Type: Spontaneous
  Country: AU (occurrence: AU)
  Receive Date: 20250415
  Receipt Date: 20251014
  Transmission Date: 20260117
  Serious: Yes (Hospitalization)
  Sender: CSL BEHRING
  Company Number: AU-BEH-2025201712

PATIENT
  Age: 62 Year
  Sex: Female
  Weight: 85 kg

DRUGS (8)
  1. HUMAN IMMUNOGLOBULIN G [Suspect]
     Active Substance: HUMAN IMMUNOGLOBULIN G
     Indication: Blood immunoglobulin G decreased
     Dosage: UNK UNK, QMT
     Route: 042
     Dates: start: 20250408, end: 20250408
  2. HUMAN IMMUNOGLOBULIN G [Suspect]
     Active Substance: HUMAN IMMUNOGLOBULIN G
     Indication: Pneumonia
     Dosage: UNK UNK, QMT
     Route: 042
     Dates: start: 20250408, end: 20250408
  3. HUMAN IMMUNOGLOBULIN G [Suspect]
     Active Substance: HUMAN IMMUNOGLOBULIN G
     Indication: Plasma cell myeloma
     Dosage: UNK UNK, QMT
     Route: 042
     Dates: start: 20251007, end: 20251007
  4. HUMAN IMMUNOGLOBULIN G [Suspect]
     Active Substance: HUMAN IMMUNOGLOBULIN G
     Dosage: UNK UNK, QMT
     Route: 042
     Dates: start: 20251007, end: 20251007
  5. THYROXINE [Concomitant]
     Active Substance: LEVOTHYROXINE
     Dosage: 100 MG, QOD ALTERNATE DAYS
  6. THYROXINE [Concomitant]
     Active Substance: LEVOTHYROXINE
     Dosage: 75 MG, QOD ALTERNATE DAYS
  7. DEXAMETHASONE [Concomitant]
     Active Substance: DEXAMETHASONE
     Dosage: 8 MG
     Dates: start: 20251007
  8. LORATADINE [Concomitant]
     Active Substance: LORATADINE
     Dosage: 10 MG
     Route: 048
     Dates: start: 20251007

REACTIONS (5)
  - Chest discomfort [Not Recovered/Not Resolved]
  - Neck pain [Recovering/Resolving]
  - Dyspnoea [Unknown]
  - Headache [Recovered/Resolved]
  - Back pain [Recovered/Resolved]

NARRATIVE: CASE EVENT DATE: 20250408
